FAERS Safety Report 6013610-5 (Version None)
Quarter: 2008Q4

REPORT INFORMATION
  Report Type: 
  Country: None (occurrence: None)
  Receive Date: 20081218
  Receipt Date: 20081218
  Transmission Date: 20090506
  Serious: Yes (Hospitalization)
  Sender: FDA-Public Use
  Company Number: None

PATIENT
  Age: 80 Year
  Sex: Male

DRUGS (1)
  1. ENOXAPARIN SODIUM [Suspect]
     Indication: ATRIAL FIBRILLATION
     Dosage: 40 MG ONCE SQ
     Route: 058
     Dates: start: 20080910, end: 20080910

REACTIONS (3)
  - BLADDER MASS [None]
  - HAEMATURIA [None]
  - HAEMORRHAGE [None]
